FAERS Safety Report 13693820 (Version 2)
Quarter: 2017Q4

REPORT INFORMATION
  Report Type: Spontaneous
  Country: GB (occurrence: GB)
  Receive Date: 20170627
  Receipt Date: 20171109
  Transmission Date: 20180320
  Serious: Yes (Disabling, Other)
  Sender: FDA-Public Use
  Company Number: GB-JNJFOC-20170621762

PATIENT
  Age: 67 Year
  Sex: Female
  Weight: 79.37 kg

DRUGS (3)
  1. PROPRANOLOL HYDROCHLORIDE. [Concomitant]
     Active Substance: PROPRANOLOL HYDROCHLORIDE
     Indication: PRODUCT USED FOR UNKNOWN INDICATION
     Route: 065
  2. COCODAMOL [Suspect]
     Active Substance: ACETAMINOPHEN\CODEINE PHOSPHATE
     Indication: ORAL PAIN
     Route: 048
     Dates: start: 20170527, end: 20170531
  3. EFFEXOR [Concomitant]
     Active Substance: VENLAFAXINE HYDROCHLORIDE
     Indication: PRODUCT USED FOR UNKNOWN INDICATION
     Route: 065

REACTIONS (4)
  - Bladder discomfort [Recovering/Resolving]
  - Dysuria [Recovering/Resolving]
  - Faecaloma [Recovering/Resolving]
  - Anorectal discomfort [Recovering/Resolving]

NARRATIVE: CASE EVENT DATE: 20170528
